FAERS Safety Report 9011605 (Version 1)
Quarter: 2013Q1

REPORT INFORMATION
  Report Type: Spontaneous
  Country: FR (occurrence: FR)
  Receive Date: 20130108
  Receipt Date: 20130108
  Transmission Date: 20140127
  Serious: Yes (Death, Other)
  Sender: FDA-Public Use
  Company Number: FR-ELI_LILLY_AND_COMPANY-FR201301001686

PATIENT
  Sex: 0

DRUGS (2)
  1. GEMCITABINE HYDROCHLORIDE [Suspect]
     Indication: HEPATIC CANCER
     Dosage: 1000 MG/M2, OTHER
  2. OXALIPLATIN [Concomitant]
     Dosage: 100 MG/M2, OTHER

REACTIONS (1)
  - Febrile neutropenia [Fatal]
